FAERS Safety Report 9961634 (Version 1)
Quarter: 2014Q1

REPORT INFORMATION
  Report Type: Report from Study
  Country: US (occurrence: US)
  Receive Date: 20140305
  Receipt Date: 20140305
  Transmission Date: 20141002
  Serious: No
  Sender: FDA-Public Use
  Company Number: US-ABBVIE-13P-163-1114428-00

PATIENT
  Age: 37 Year
  Sex: Female

DRUGS (2)
  1. HUMIRA [Suspect]
     Indication: ANKYLOSING SPONDYLITIS
  2. LORTAB [Concomitant]
     Indication: PAIN
     Dosage: 7.2

REACTIONS (2)
  - Headache [Recovering/Resolving]
  - Vomiting [Recovering/Resolving]
